FAERS Safety Report 16419533 (Version 1)
Quarter: 2019Q2

REPORT INFORMATION
  Report Type: Spontaneous
  Country: US (occurrence: US)
  Receive Date: 20190503
  Receipt Date: 20190503
  Transmission Date: 20190711
  Serious: No
  Sender: FDA-Public Use
  Company Number: None

PATIENT
  Age: 57 Year
  Sex: Female

DRUGS (1)
  1. TADALAFIL  20MG TAB [Suspect]
     Active Substance: TADALAFIL
     Dates: start: 201905

REACTIONS (2)
  - Product dose omission [None]
  - Inability to afford medication [None]

NARRATIVE: CASE EVENT DATE: 20190503
